FAERS Safety Report 14222254 (Version 1)
Quarter: 2017Q4

REPORT INFORMATION
  Report Type: Spontaneous
  Country: US (occurrence: US)
  Receive Date: 20171124
  Receipt Date: 20171124
  Transmission Date: 20180321
  Serious: No
  Sender: FDA-Public Use
  Company Number: US-BRISTOL-MYERS SQUIBB COMPANY-BMS-2017-105760

PATIENT

DRUGS (1)
  1. SPRYCEL [Suspect]
     Active Substance: DASATINIB
     Indication: CHRONIC MYELOID LEUKAEMIA
     Route: 065

REACTIONS (7)
  - Vomiting [Unknown]
  - Headache [Unknown]
  - Diarrhoea [Unknown]
  - Fatigue [Unknown]
  - Pain in extremity [Unknown]
  - Rash [Unknown]
  - Nausea [Unknown]
